FAERS Safety Report 7076219-0 (Version None)
Quarter: 2010Q4

REPORT INFORMATION
  Report Type: 
  Country: None (occurrence: None)
  Receive Date: 20101101
  Receipt Date: 20101020
  Transmission Date: 20110411
  Serious: Yes (Other)
  Sender: FDA-Public Use
  Company Number: US-BAYER-201038195NA

PATIENT
  Age: 47 Year
  Sex: Female

DRUGS (1)
  1. MIRENA [Suspect]
     Indication: MENORRHAGIA
     Route: 015
     Dates: start: 20081101

REACTIONS (5)
  - DEVICE DISLOCATION [None]
  - DYSURIA [None]
  - GENITAL INFECTION FEMALE [None]
  - MENORRHAGIA [None]
  - VULVOVAGINAL PRURITUS [None]
